FAERS Safety Report 13685382 (Version 1)
Quarter: 2017Q2

REPORT INFORMATION
  Report Type: Spontaneous
  Country: US (occurrence: US)
  Receive Date: 20170623
  Receipt Date: 20170623
  Transmission Date: 20170830
  Serious: No
  Sender: FDA-Public Use
  Company Number: US-INCYTE CORPORATION-2017IN004717

PATIENT

DRUGS (1)
  1. JAKAFI [Suspect]
     Active Substance: RUXOLITINIB
     Dosage: 5 MG, BID
     Route: 048
     Dates: start: 20170114

REACTIONS (11)
  - Head injury [Unknown]
  - Groin pain [Unknown]
  - Fall [Unknown]
  - Memory impairment [Unknown]
  - Urinary incontinence [Unknown]
  - Volume blood decreased [Unknown]
  - Contusion [Unknown]
  - Tympanic membrane perforation [Unknown]
  - Loss of personal independence in daily activities [Unknown]
  - Vertigo [Unknown]
  - Balance disorder [Unknown]
